FAERS Safety Report 8152191-7 (Version None)
Quarter: 2012Q1

REPORT INFORMATION
  Report Type: 
  Country: None (occurrence: None)
  Receive Date: 20120103
  Receipt Date: 20111003
  Transmission Date: 20120608
  Serious: No
  Sender: FDA-Public Use
  Company Number: AE-2011-001893

PATIENT
  Age: 55 Year
  Sex: Male
  Weight: 81.6475 kg

DRUGS (5)
  1. INCIVEK [Suspect]
     Dosage: 2250 MG (750 MG,1 IN 8 HR),ORAL
     Route: 048
     Dates: start: 20110101
  2. MULTI-VITAMINS [Concomitant]
  3. FISH OIL (FISH OIL) [Concomitant]
  4. PEGASYS [Concomitant]
  5. RIBAVIRIN [Concomitant]

REACTIONS (2)
  - RASH GENERALISED [None]
  - PRURITUS [None]
